FAERS Safety Report 9388017 (Version 1)
Quarter: 2013Q3

REPORT INFORMATION
  Report Type: Spontaneous
  Country: FR (occurrence: FR)
  Receive Date: 20130708
  Receipt Date: 20130708
  Transmission Date: 20140515
  Serious: Yes (Hospitalization, Other)
  Sender: FDA-Public Use
  Company Number: FR-TEVA-417298ISR

PATIENT
  Age: 93 Year
  Sex: Female

DRUGS (5)
  1. FUROSEMIDE TEVA 40 MG [Suspect]
     Indication: CARDIAC DISORDER
     Dosage: 40 MG OR 60 MG A DAY
     Route: 048
     Dates: end: 201304
  2. FUROSEMIDE TEVA 40 MG [Suspect]
     Indication: OEDEMA
     Dosage: 40 MILLIGRAM DAILY;
     Route: 048
     Dates: start: 20130606, end: 201306
  3. LEXOMIL [Concomitant]
  4. SECTRAL [Concomitant]
  5. MINISINTROM [Concomitant]

REACTIONS (6)
  - Coma [Recovered/Resolved with Sequelae]
  - Oedema [Recovering/Resolving]
  - Fatigue [Unknown]
  - Dyspnoea [Not Recovered/Not Resolved]
  - Somnolence [Unknown]
  - Disorientation [Unknown]
